FAERS Safety Report 9849059 (Version 2)
Quarter: 2014Q2

REPORT INFORMATION
  Report Type: Spontaneous
  Country: CA (occurrence: CA)
  Receive Date: 20140128
  Receipt Date: 20140425
  Transmission Date: 20141212
  Serious: Yes (Hospitalization)
  Sender: FDA-Public Use
  Company Number: CA-AMGEN-CANSP2014005406

PATIENT
  Age: 46 Year
  Sex: Female

DRUGS (8)
  1. ENBREL [Suspect]
     Indication: RHEUMATOID ARTHRITIS
     Dosage: 50 MG, UNK
     Route: 065
     Dates: start: 20120216
  2. CYCLOSPORINE [Concomitant]
     Dosage: 50 MG, BID
  3. LORAZEPAN [Concomitant]
     Dosage: UNK UNK, AS NECESSARY
  4. SEROQUEL [Concomitant]
     Dosage: 300 MG, UNK
  5. METFORMIN [Concomitant]
     Dosage: 500 MG, TID
  6. GLYBURIDE [Concomitant]
     Dosage: 5 MG, BID
  7. NOVOLIN [Concomitant]
     Dosage: UNK
  8. VENLAFAXINE [Concomitant]
     Dosage: 225 MG, UNK

REACTIONS (1)
  - Urinary tract infection [Not Recovered/Not Resolved]
